FAERS Safety Report 7626716-1 (Version None)
Quarter: 2011Q3

REPORT INFORMATION
  Report Type: 
  Country: None (occurrence: None)
  Receive Date: 20110721
  Receipt Date: 20110718
  Transmission Date: 20111222
  Serious: Yes (Other)
  Sender: FDA-Public Use
  Company Number: CN-SANOFI-AVENTIS-2011SA045591

PATIENT
  Sex: Male

DRUGS (7)
  1. PLAVIX [Suspect]
     Route: 048
     Dates: start: 20110701
  2. SIMVASTATIN [Concomitant]
     Indication: CARDIOVASCULAR EVENT PROPHYLAXIS
     Dosage: DOSE:1 UNIT(S)
     Route: 048
     Dates: start: 20110501
  3. PLAVIX [Suspect]
     Indication: THROMBOSIS PROPHYLAXIS
     Route: 048
     Dates: start: 20110501, end: 20110701
  4. PLAVIX [Suspect]
     Route: 048
     Dates: start: 20110701
  5. PLAVIX [Suspect]
     Route: 048
     Dates: start: 20110701
  6. PLAVIX [Suspect]
     Indication: MYOCARDIAL INFARCTION
     Route: 048
     Dates: start: 20110501, end: 20110701
  7. PLAVIX [Suspect]
     Indication: PERCUTANEOUS CORONARY INTERVENTION
     Route: 048
     Dates: start: 20110501, end: 20110701

REACTIONS (4)
  - RESPIRATORY DISTRESS [None]
  - NAUSEA [None]
  - ANGINA PECTORIS [None]
  - PRODUCT COUNTERFEIT [None]
